FAERS Safety Report 13739797 (Version 1)
Quarter: 2017Q3

REPORT INFORMATION
  Report Type: Spontaneous
  Country: None (occurrence: JP)
  Receive Date: 20170710
  Receipt Date: 20170710
  Transmission Date: 20171127
  Serious: Yes (Life-Threatening, Hospitalization)
  Sender: FDA-Public Use
  Company Number: CVBU2001JP01288

PATIENT
  Age: 65 Year
  Sex: Male

DRUGS (2)
  1. CARTEOLOL (NVO) [Suspect]
     Active Substance: CARTEOLOL HYDROCHLORIDE
     Dosage: 2 DRP, UNK
     Dates: start: 200104, end: 20010920
  2. LATANOPROST. [Concomitant]
     Active Substance: LATANOPROST
     Dosage: UNK, ONCE/SINGLE

REACTIONS (6)
  - Loss of consciousness [None]
  - Atrioventricular block complete [Recovered/Resolved]
  - Electrocardiogram ST segment depression [None]
  - Arteriospasm coronary [None]
  - Angina pectoris [Recovered/Resolved]
  - Coronary artery stenosis [None]

NARRATIVE: CASE EVENT DATE: 20010823
